FAERS Safety Report 9930534 (Version 1)
Quarter: 2014Q1

REPORT INFORMATION
  Report Type: Spontaneous
  Country: US (occurrence: US)
  Receive Date: 20140227
  Receipt Date: 20140227
  Transmission Date: 20141002
  Serious: No
  Sender: FDA-Public Use
  Company Number: US-AMGEN-USASP2013089058

PATIENT
  Age: 48 Year
  Sex: Male

DRUGS (2)
  1. ENBREL [Suspect]
     Indication: PSORIASIS
     Dosage: UNK, EVERY 3 DAYS
     Route: 065
     Dates: end: 201306
  2. ENBREL [Suspect]

REACTIONS (3)
  - Skin plaque [Not Recovered/Not Resolved]
  - Injection site extravasation [Unknown]
  - Psoriasis [Recovered/Resolved]
